FAERS Safety Report 20021041 (Version 7)
Quarter: 2022Q2

REPORT INFORMATION
  Report Type: Report from Study
  Country: US (occurrence: US)
  Receive Date: 20211101
  Receipt Date: 20220404
  Transmission Date: 20220721
  Serious: No
  Sender: FDA-Public Use
  Company Number: US-NOVARTISTESTPH-NVSC2021US249250

PATIENT
  Sex: Female

DRUGS (1)
  1. COSENTYX [Suspect]
     Active Substance: SECUKINUMAB
     Indication: Psoriasis
     Dosage: 300 MG
     Route: 065

REACTIONS (7)
  - Injection site swelling [Unknown]
  - Injection site warmth [Unknown]
  - Headache [Unknown]
  - Injection site reaction [Unknown]
  - Injection site bruising [Unknown]
  - Impaired healing [Unknown]
  - Laryngitis [Unknown]
